FAERS Safety Report 20201178 (Version 1)
Quarter: 2021Q4

REPORT INFORMATION
  Report Type: Spontaneous
  Country: ES (occurrence: ES)
  Receive Date: 20211217
  Receipt Date: 20211217
  Transmission Date: 20220304
  Serious: Yes (Death)
  Sender: FDA-Public Use
  Company Number: ES-KEOCYT-2021000025

PATIENT
  Age: 65 Year
  Sex: Male

DRUGS (2)
  1. FLUOROURACIL [Suspect]
     Active Substance: FLUOROURACIL
     Indication: Pancreatic neuroendocrine tumour
     Dosage: UNK
     Route: 065
  2. STREPTOZOCIN [Suspect]
     Active Substance: STREPTOZOCIN
     Indication: Pancreatic neuroendocrine tumour
     Dosage: UNK
     Route: 065

REACTIONS (2)
  - Pneumonia [Fatal]
  - Sepsis [Fatal]
